FAERS Safety Report 10543049 (Version 3)
Quarter: 2014Q4

REPORT INFORMATION
  Report Type: Spontaneous
  Country: FI (occurrence: FI)
  Receive Date: 20141027
  Receipt Date: 20141103
  Transmission Date: 20150529
  Serious: Yes (Other)
  Sender: FDA-Public Use
  Company Number: PHHY2014FI135771

PATIENT
  Age: 51 Year
  Sex: Female

DRUGS (3)
  1. TRILEPTAL [Suspect]
     Active Substance: OXCARBAZEPINE
     Indication: PETIT MAL EPILEPSY
     Dosage: 300 MG, BID
     Route: 065
     Dates: start: 20131104, end: 20131126
  2. TRILEPTAL [Suspect]
     Active Substance: OXCARBAZEPINE
     Indication: MENINGIOMA
  3. THYROXIN [Concomitant]
     Active Substance: LEVOTHYROXINE
     Indication: HYPOTHYROIDISM
     Dosage: 0.15 MG, QD
     Route: 048
     Dates: start: 1986

REACTIONS (9)
  - Lip blister [Recovered/Resolved]
  - Lip swelling [Recovered/Resolved]
  - Lip pain [Recovered/Resolved]
  - Oropharyngeal pain [Recovered/Resolved]
  - Off label use [Recovered/Resolved]
  - Lip ulceration [Recovered/Resolved]
  - Mouth ulceration [Recovered/Resolved]
  - Skin exfoliation [Recovered/Resolved]
  - Stevens-Johnson syndrome [Recovered/Resolved]

NARRATIVE: CASE EVENT DATE: 201311
